FAERS Safety Report 6369955-2 (Version None)
Quarter: 2009Q3

REPORT INFORMATION
  Report Type: 
  Country: None (occurrence: None)
  Receive Date: 20090923
  Receipt Date: 20070821
  Transmission Date: 20100115
  Serious: Yes (Other)
  Sender: FDA-Public Use
  Company Number: US-ASTRAZENECA-2006UW04335

PATIENT
  Age: 11250 Day
  Sex: Male
  Weight: 122 kg

DRUGS (36)
  1. SEROQUEL [Suspect]
     Indication: DEPRESSION
     Dosage: 25-700 MG
     Route: 048
     Dates: start: 20011002
  2. SEROQUEL [Suspect]
     Indication: SCHIZOPHRENIA
     Dosage: 25-700 MG
     Route: 048
     Dates: start: 20011002
  3. SEROQUEL [Suspect]
     Indication: ANXIETY
     Dosage: 25-700 MG
     Route: 048
     Dates: start: 20011002
  4. SEROQUEL [Suspect]
     Indication: SLEEP DISORDER
     Dosage: 25-700 MG
     Route: 048
     Dates: start: 20011002
  5. SEROQUEL [Suspect]
     Indication: THINKING ABNORMAL
     Dosage: 25-700 MG
     Route: 048
     Dates: start: 20011002
  6. SEROQUEL [Suspect]
     Indication: DRUG THERAPY
     Dosage: 25-700 MG
     Route: 048
     Dates: start: 20011002
  7. SEROQUEL [Suspect]
     Indication: ABNORMAL BEHAVIOUR
     Dosage: 25-700 MG
     Route: 048
     Dates: start: 20011002
  8. SEROQUEL [Suspect]
     Route: 048
     Dates: start: 20011012
  9. SEROQUEL [Suspect]
     Route: 048
     Dates: start: 20011012
  10. SEROQUEL [Suspect]
     Route: 048
     Dates: start: 20011012
  11. SEROQUEL [Suspect]
     Route: 048
     Dates: start: 20011012
  12. SEROQUEL [Suspect]
     Route: 048
     Dates: start: 20011012
  13. SEROQUEL [Suspect]
     Route: 048
     Dates: start: 20011012
  14. SEROQUEL [Suspect]
     Route: 048
     Dates: start: 20011012
  15. ABILIFY [Concomitant]
     Route: 065
     Dates: start: 20070410
  16. RISPERDAL [Concomitant]
     Route: 065
     Dates: start: 19980505, end: 20010803
  17. ASPIRIN [Concomitant]
     Route: 048
  18. CITALOPRAM HYDROBROMIDE [Concomitant]
     Route: 048
  19. SERTRALINE HYDROCHLORIDE [Concomitant]
     Indication: AFFECTIVE DISORDER
     Route: 048
  20. ACYCLOVIR [Concomitant]
     Indication: GENITAL INFECTION VIRAL
     Route: 048
  21. CLONAZEPAM [Concomitant]
     Indication: ANXIETY
     Route: 048
  22. IBUPROFEN [Concomitant]
  23. WELLBUTRIN SR [Concomitant]
  24. FLUOCINONIDE [Concomitant]
  25. PENICILLIN VK [Concomitant]
  26. ACETAMINOPHEN AND CODEINE PHOSPHATE [Concomitant]
  27. ETODOLAC [Concomitant]
  28. ATENOLOL [Concomitant]
  29. KETOROLAC TROMETHAMINE [Concomitant]
  30. CHLORZOXAZONE [Concomitant]
  31. MICONAZOLE NITRATE [Concomitant]
  32. FLUCONAZOLE [Concomitant]
  33. LISINOPRIL [Concomitant]
  34. NICOTINE [Concomitant]
  35. LOVASTATIN [Concomitant]
  36. METFORMIN HCL [Concomitant]

REACTIONS (2)
  - DIABETES MELLITUS [None]
  - HYPERGLYCAEMIC HYPEROSMOLAR NONKETOTIC SYNDROME [None]
